FAERS Safety Report 7100143-8 (Version None)
Quarter: 2010Q4

REPORT INFORMATION
  Report Type: 
  Country: None (occurrence: None)
  Receive Date: 20101112
  Receipt Date: 20100430
  Transmission Date: 20110411
  Serious: No
  Sender: FDA-Public Use
  Company Number: A0858607A

PATIENT
  Age: 57 Year
  Sex: Female

DRUGS (5)
  1. COREG [Suspect]
     Indication: STENT PLACEMENT
     Dates: start: 20090901
  2. PLAVIX [Suspect]
     Indication: STENT PLACEMENT
     Dosage: 75MG PER DAY
     Route: 048
     Dates: start: 20090901
  3. CONCURRENT MEDICATIONS [Concomitant]
  4. NIACIN [Concomitant]
  5. HMG CO-A REDUCTASE INHIBITOR [Concomitant]

REACTIONS (1)
  - AMNESIA [None]
